FAERS Safety Report 6186086-5 (Version None)
Quarter: 2009Q2

REPORT INFORMATION
  Report Type: 
  Country: None (occurrence: None)
  Receive Date: 20090507
  Receipt Date: 20090423
  Transmission Date: 20091009
  Serious: Yes (Hospitalization)
  Sender: FDA-Public Use
  Company Number: 2008001987

PATIENT
  Age: 74 Year
  Sex: Male

DRUGS (12)
  1. ERLOTINIB (ERLOTINIB (TABLET) (ERLOTINIB) [Suspect]
     Indication: NON-SMALL CELL LUNG CANCER
     Dosage: 150 MG, QD, ORAL
     Route: 048
     Dates: start: 20080626
  2. GLYBURIDE [Suspect]
  3. GLUCOBAY [Suspect]
  4. GLYBURIDE [Concomitant]
  5. ADALAT CC [Concomitant]
  6. INDERAL (PROPRANOL HYDROCHLORIDE) [Concomitant]
  7. OLMETEC (OLMESARTAN) [Concomitant]
  8. LIPITOR [Concomitant]
  9. ROHYPNOL (FLUNITRAZEPAM) [Concomitant]
  10. DEPAS (ETIZOLAM) [Concomitant]
  11. LOXOPROFEN (LOXOPROFEN) [Concomitant]
  12. SELBEX (TEPRENONE) [Concomitant]

REACTIONS (3)
  - DIARRHOEA [None]
  - HYPOGLYCAEMIA [None]
  - RASH [None]
